FAERS Safety Report 17407581 (Version 1)
Quarter: 2020Q1

REPORT INFORMATION
  Report Type: Other
  Country: BR (occurrence: BR)
  Receive Date: 20200212
  Receipt Date: 20200212
  Transmission Date: 20200409
  Serious: Yes (Life-Threatening)
  Sender: FDA-Public Use
  Company Number: BR-INNOGENIX, LLC-2080175

PATIENT
  Age: 34 Year
  Sex: Female

DRUGS (7)
  1. VANCOMYCIN [Suspect]
     Active Substance: VANCOMYCIN
     Route: 065
  2. CEPHEPIME [Suspect]
     Active Substance: CEFEPIME HYDROCHLORIDE
     Route: 042
  3. MEROPENEM. [Suspect]
     Active Substance: MEROPENEM
     Route: 042
  4. METRONIDAZOLE. [Suspect]
     Active Substance: METRONIDAZOLE
     Indication: PRODUCT USED FOR UNKNOWN INDICATION
     Route: 065
  5. IMIPENEM [Suspect]
     Active Substance: IMIPENEM
     Route: 042
  6. CIPROFLOXACIN. [Suspect]
     Active Substance: CIPROFLOXACIN
     Route: 042
  7. FLUCONAZOLE. [Suspect]
     Active Substance: FLUCONAZOLE
     Route: 065

REACTIONS (1)
  - Drug ineffective [Unknown]
